FAERS Safety Report 5066427-2 (Version None)
Quarter: 2006Q3

REPORT INFORMATION
  Report Type: 
  Country: None (occurrence: None)
  Receive Date: 20060728
  Receipt Date: 20060720
  Transmission Date: 20061208
  Serious: Yes (Other)
  Sender: FDA-Public Use
  Company Number: 2006089645

PATIENT
  Age: 50 Year
  Sex: Female
  Weight: 74.8435 kg

DRUGS (2)
  1. BENADRYL [Suspect]
     Indication: HYPERSENSITIVITY
     Dosage: 1 TO 2 ULTRATABS  TO 2 TIMES DAILY, ORAL
     Route: 048
     Dates: start: 19750101
  2. IBUPROFEN [Concomitant]

REACTIONS (3)
  - FATIGUE [None]
  - HEPATIC ENZYME ABNORMAL [None]
  - NEPHROLITHIASIS [None]
